FAERS Safety Report 21675859 (Version 1)
Quarter: 2022Q4

REPORT INFORMATION
  Report Type: Report from Study
  Country: US (occurrence: US)
  Receive Date: 20221202
  Receipt Date: 20221202
  Transmission Date: 20230113
  Serious: No
  Sender: FDA-Public Use
  Company Number: US-ABBVIE-4202984

PATIENT
  Sex: Female

DRUGS (3)
  1. HUMIRA [Suspect]
     Active Substance: ADALIMUMAB
     Indication: Hidradenitis
     Dosage: FIRST ADMIN DATE-OCT 2022?LAST ADMIN DATE-OCT-2022 ?DAY 1?STRENGTH-80 MG
     Route: 058
  2. HUMIRA [Suspect]
     Active Substance: ADALIMUMAB
     Dosage: FIRST ADMIN DATE-2022?LAST ADMIN DATE-2022?DAY 2?STRENGTH-80 MG
     Route: 058
  3. HUMIRA [Suspect]
     Active Substance: ADALIMUMAB
     Dosage: FIRST ADMIN DATE-2022?LAST ADMIN DATE-2022?DAY 15?STRENGTH-80 MG
     Route: 058

REACTIONS (1)
  - Bell^s palsy [Recovered/Resolved]

NARRATIVE: CASE EVENT DATE: 20220101
